FAERS Safety Report 24556598 (Version 1)
Quarter: 2024Q4

REPORT INFORMATION
  Report Type: Spontaneous
  Country: US (occurrence: None)
  Receive Date: 20241027
  Receipt Date: 20241027
  Transmission Date: 20250115
  Serious: Yes (Other)
  Sender: Public
  Company Number: None

PATIENT
  Age: 71 Year
  Sex: Male
  Weight: 87.75 kg

DRUGS (22)
  1. PAXLOVID [Suspect]
     Active Substance: NIRMATRELVIR\RITONAVIR
     Indication: COVID-19
     Dosage: OTHER QUANTITY : 3 TABLET(S);?FREQUENCY : TWICE A DAY;?
     Route: 048
     Dates: start: 20241012, end: 20241016
  2. LOSARTAN [Concomitant]
     Active Substance: LOSARTAN
  3. HYDROCHLOROTHIAZIDE [Concomitant]
     Active Substance: HYDROCHLOROTHIAZIDE
  4. ROSUVASTATIN [Concomitant]
  5. TRAMADOL [Concomitant]
  6. CYCLOBENZAPRINE [Concomitant]
     Active Substance: CYCLOBENZAPRINE
  7. HYDROXYZINE [Concomitant]
  8. SILDENAFIL [Concomitant]
     Active Substance: SILDENAFIL
  9. CELECOXIB [Concomitant]
     Active Substance: CELECOXIB
  10. GABAPENTIN [Concomitant]
     Active Substance: GABAPENTIN
  11. TRAMADOL [Concomitant]
  12. TYLENOL [Concomitant]
     Active Substance: ACETAMINOPHEN
  13. ANTIHISTAMINES [Concomitant]
  14. sudafed [Concomitant]
  15. IBUPROFEN [Concomitant]
  16. ALEVE [Concomitant]
     Active Substance: NAPROXEN SODIUM
  17. MELATONIN [Concomitant]
     Active Substance: MELATONIN
  18. multivitamins [Concomitant]
  19. VITAMIN D3 [Concomitant]
     Active Substance: CHOLECALCIFEROL
  20. CALCIUM [Concomitant]
     Active Substance: CALCIUM
  21. MAGNESIUM [Concomitant]
     Active Substance: MAGNESIUM
  22. herbal caffeine [Concomitant]

REACTIONS (4)
  - Urticaria [None]
  - Pruritus [None]
  - Swelling [None]
  - Skin warm [None]

NARRATIVE: CASE EVENT DATE: 20241016
